FAERS Safety Report 8465509-2 (Version None)
Quarter: 2012Q2

REPORT INFORMATION
  Report Type: 
  Country: None (occurrence: None)
  Receive Date: 20120626
  Receipt Date: 20120620
  Transmission Date: 20120825
  Serious: No
  Sender: FDA-Public Use
  Company Number: US-BAYER-2012-062532

PATIENT

DRUGS (3)
  1. ICY HOT [Concomitant]
  2. ALEVE (CAPLET) [Suspect]
     Dosage: 2 DF, UNK
     Route: 048
  3. TIGER BALM [Concomitant]

REACTIONS (1)
  - DRUG INEFFECTIVE [None]
